FAERS Safety Report 22257602 (Version 2)
Quarter: 2023Q2

REPORT INFORMATION
  Report Type: Spontaneous
  Country: US (occurrence: US)
  Receive Date: 20230427
  Receipt Date: 20230503
  Transmission Date: 20230722
  Serious: No
  Sender: FDA-Public Use
  Company Number: US-ELI_LILLY_AND_COMPANY-US202304012359

PATIENT
  Age: 72 Year
  Sex: Female

DRUGS (2)
  1. TRULICITY [Suspect]
     Active Substance: DULAGLUTIDE
     Indication: Type 2 diabetes mellitus
     Dosage: 0.75 MG, UNKNOWN
     Route: 065
     Dates: start: 20230417, end: 20230417
  2. ASPIRIN [Concomitant]
     Active Substance: ASPIRIN
     Indication: Product used for unknown indication

REACTIONS (11)
  - Hot flush [Not Recovered/Not Resolved]
  - Erythema [Not Recovered/Not Resolved]
  - Dizziness [Not Recovered/Not Resolved]
  - Pyrexia [Not Recovered/Not Resolved]
  - Swelling [Not Recovered/Not Resolved]
  - Ocular hyperaemia [Unknown]
  - Eye swelling [Not Recovered/Not Resolved]
  - Swollen tongue [Not Recovered/Not Resolved]
  - Swelling face [Not Recovered/Not Resolved]
  - Nausea [Not Recovered/Not Resolved]
  - Pharyngeal swelling [Not Recovered/Not Resolved]

NARRATIVE: CASE EVENT DATE: 20230420
